FAERS Safety Report 7554637-1 (Version None)
Quarter: 2011Q2

REPORT INFORMATION
  Report Type: 
  Country: None (occurrence: None)
  Receive Date: 20110617
  Receipt Date: 20110610
  Transmission Date: 20111010
  Serious: Yes (Hospitalization, Other)
  Sender: FDA-Public Use
  Company Number: US-SANOFI-AVENTIS-2011SA037118

PATIENT
  Age: 64 Year
  Sex: Female

DRUGS (20)
  1. FLONASE [Concomitant]
     Dosage: NASAY SPRAY
     Route: 045
  2. PLAVIX [Concomitant]
  3. VITAMIN B-12 [Concomitant]
  4. LANTUS [Suspect]
     Route: 058
  5. ELMIRON [Concomitant]
  6. LEVOTHYROXINE SODIUM [Concomitant]
  7. COZAAR [Concomitant]
  8. CALCIUM CARBONATE [Concomitant]
  9. VITAMIN D [Concomitant]
  10. VITAMIN B-12 [Concomitant]
  11. ALPRAZOLAM [Concomitant]
  12. ALBUTEROL SULFATE AUTOHALER [Concomitant]
  13. ESTRADIOL [Concomitant]
  14. TOPAMAX [Concomitant]
  15. ASCORBIC ACID [Concomitant]
  16. ZINC [Concomitant]
  17. VITAMIN E [Concomitant]
  18. ATORVASTATIN [Concomitant]
  19. MAGNESIUM [Concomitant]
  20. COQ10 [Concomitant]

REACTIONS (5)
  - BLOOD GLUCOSE DECREASED [None]
  - TRANSIENT ISCHAEMIC ATTACK [None]
  - EAR PAIN [None]
  - COUGH [None]
  - LASER THERAPY [None]
